FAERS Safety Report 7928757-3 (Version None)
Quarter: 2011Q4

REPORT INFORMATION
  Report Type: 
  Country: None (occurrence: None)
  Receive Date: 20111118
  Receipt Date: 20111103
  Transmission Date: 20120403
  Serious: Yes (Hospitalization, Other)
  Sender: FDA-Public Use
  Company Number: US-WATSON-2009-04244

PATIENT
  Age: 19 Month
  Sex: Female

DRUGS (1)
  1. FENTANYL-25 [Suspect]
     Indication: ACCIDENTAL EXPOSURE
     Dosage: 25 MCG PATCH, SINGLE
     Route: 062

REACTIONS (14)
  - TOXICITY TO VARIOUS AGENTS [None]
  - ACCIDENTAL DRUG INTAKE BY CHILD [None]
  - COMA [None]
  - CONVULSION [None]
  - HEART RATE INCREASED [None]
  - RESPIRATORY DEPRESSION [None]
  - MIOSIS [None]
  - BLOOD PRESSURE DECREASED [None]
  - ACCIDENTAL OVERDOSE [None]
  - DIABETIC KETOACIDOSIS [None]
  - ACCIDENTAL EXPOSURE [None]
  - LEUKOENCEPHALOPATHY [None]
  - HYPOTHERMIA [None]
  - NUCLEAR MAGNETIC RESONANCE IMAGING BRAIN ABNORMAL [None]
